FAERS Safety Report 23561541 (Version 1)
Quarter: 2024Q1

REPORT INFORMATION
  Report Type: Report from Study
  Country: US (occurrence: US)
  Receive Date: 20240225
  Receipt Date: 20240225
  Transmission Date: 20240409
  Serious: Yes (Other)
  Sender: FDA-Public Use
  Company Number: US-AUROBINDO-AUR-APL-2024-007746

PATIENT
  Age: 34 Year
  Sex: Male

DRUGS (1)
  1. PROPAFENONE HYDROCHLORIDE [Suspect]
     Active Substance: PROPAFENONE HYDROCHLORIDE
     Indication: Atrial tachycardia
     Dosage: 450 MILLIGRAM, 1.5H LATER,
     Route: 048

REACTIONS (1)
  - Ventricular arrhythmia [Recovered/Resolved]
